FAERS Safety Report 25061756 (Version 5)
Quarter: 2025Q3

REPORT INFORMATION
  Report Type: Spontaneous
  Country: EU (occurrence: EU)
  Receive Date: 20250311
  Receipt Date: 20250718
  Transmission Date: 20251021
  Serious: Yes (Death, Other)
  Sender: AUROBINDO
  Company Number: EU-GSK-FR2025GSK015538

PATIENT
  Age: 78 Year
  Sex: Female

DRUGS (46)
  1. CARBOPLATIN [Suspect]
     Active Substance: CARBOPLATIN
     Indication: Endometrial cancer recurrent
     Route: 065
     Dates: start: 20240809, end: 20241120
  2. CARBOPLATIN [Suspect]
     Active Substance: CARBOPLATIN
     Indication: Cervix carcinoma
  3. PACLITAXEL [Suspect]
     Active Substance: PACLITAXEL
     Indication: Endometrial cancer recurrent
     Route: 065
     Dates: start: 20240809, end: 20241120
  4. PACLITAXEL [Suspect]
     Active Substance: PACLITAXEL
     Indication: Cervix carcinoma
  5. DOSTARLIMAB [Suspect]
     Active Substance: DOSTARLIMAB
     Indication: Endometrial cancer recurrent
     Route: 042
     Dates: start: 20240809
  6. DOSTARLIMAB [Suspect]
     Active Substance: DOSTARLIMAB
     Indication: Cervix carcinoma
     Route: 042
     Dates: start: 20241227
  7. CANDESARTAN [Concomitant]
     Active Substance: CANDESARTAN
     Indication: Type 1 diabetes mellitus
     Route: 065
  8. CANDESARTAN [Concomitant]
     Active Substance: CANDESARTAN
     Indication: Hypertension
  9. CANDESARTAN [Concomitant]
     Active Substance: CANDESARTAN
     Indication: Dyslipidaemia
  10. CANDESARTAN [Concomitant]
     Active Substance: CANDESARTAN
     Indication: Hypothyroidism
  11. ROSUVASTATIN [Concomitant]
     Active Substance: ROSUVASTATIN
     Indication: Type 1 diabetes mellitus
     Dosage: 20 MILLIGRAM, ONCE A DAY (20 MG 1 TABLET EVENING)
     Route: 065
  12. ROSUVASTATIN [Concomitant]
     Active Substance: ROSUVASTATIN
     Indication: Hypertension
  13. ROSUVASTATIN [Concomitant]
     Active Substance: ROSUVASTATIN
     Indication: Dyslipidaemia
  14. ROSUVASTATIN [Concomitant]
     Active Substance: ROSUVASTATIN
     Indication: Hypothyroidism
  15. FUROSEMIDE [Concomitant]
     Active Substance: FUROSEMIDE
     Indication: Type 1 diabetes mellitus
     Route: 065
  16. FUROSEMIDE [Concomitant]
     Active Substance: FUROSEMIDE
     Indication: Hypertension
  17. FUROSEMIDE [Concomitant]
     Active Substance: FUROSEMIDE
     Indication: Dyslipidaemia
  18. FUROSEMIDE [Concomitant]
     Active Substance: FUROSEMIDE
     Indication: Hypothyroidism
  19. PAROXETINE [Concomitant]
     Active Substance: PAROXETINE
     Indication: Type 1 diabetes mellitus
     Route: 065
  20. PAROXETINE [Concomitant]
     Active Substance: PAROXETINE
     Indication: Hypertension
  21. PAROXETINE [Concomitant]
     Active Substance: PAROXETINE
     Indication: Dyslipidaemia
  22. PAROXETINE [Concomitant]
     Active Substance: PAROXETINE
     Indication: Hypothyroidism
  23. OXAZEPAM [Concomitant]
     Active Substance: OXAZEPAM
     Indication: Type 1 diabetes mellitus
     Dosage: 10 MILLIGRAM, ONCE A DAY (10 MG (SERESTA), 1 TABLET, AT 10 PM,)
     Route: 065
  24. OXAZEPAM [Concomitant]
     Active Substance: OXAZEPAM
     Indication: Hypertension
  25. OXAZEPAM [Concomitant]
     Active Substance: OXAZEPAM
     Indication: Dyslipidaemia
  26. OXAZEPAM [Concomitant]
     Active Substance: OXAZEPAM
     Indication: Hypothyroidism
  27. MIANSERIN [Concomitant]
     Active Substance: MIANSERIN
     Indication: Type 1 diabetes mellitus
     Route: 065
  28. MIANSERIN [Concomitant]
     Active Substance: MIANSERIN
     Indication: Hypertension
  29. MIANSERIN [Concomitant]
     Active Substance: MIANSERIN
     Indication: Dyslipidaemia
  30. MIANSERIN [Concomitant]
     Active Substance: MIANSERIN
     Indication: Hypothyroidism
  31. PANTOPRAZOLE [Concomitant]
     Active Substance: PANTOPRAZOLE
     Indication: Type 1 diabetes mellitus
     Dosage: 20 MILLIGRAM, ONCE A DAY (20 MG, 1 TABLET, EVENING)
     Route: 065
  32. PANTOPRAZOLE [Concomitant]
     Active Substance: PANTOPRAZOLE
     Indication: Hypertension
  33. PANTOPRAZOLE [Concomitant]
     Active Substance: PANTOPRAZOLE
     Indication: Dyslipidaemia
  34. PANTOPRAZOLE [Concomitant]
     Active Substance: PANTOPRAZOLE
     Indication: Hypothyroidism
  35. LEVOTHYROXINE [Concomitant]
     Active Substance: LEVOTHYROXINE
     Indication: Type 1 diabetes mellitus
     Route: 065
  36. LEVOTHYROXINE [Concomitant]
     Active Substance: LEVOTHYROXINE
     Indication: Hypertension
  37. LEVOTHYROXINE [Concomitant]
     Active Substance: LEVOTHYROXINE
     Indication: Dyslipidaemia
  38. LEVOTHYROXINE [Concomitant]
     Active Substance: LEVOTHYROXINE
     Indication: Hypothyroidism
  39. NOVORAPID [Concomitant]
     Active Substance: INSULIN ASPART
     Indication: Type 1 diabetes mellitus
     Route: 065
  40. NOVORAPID [Concomitant]
     Active Substance: INSULIN ASPART
     Indication: Hypertension
  41. NOVORAPID [Concomitant]
     Active Substance: INSULIN ASPART
     Indication: Dyslipidaemia
  42. NOVORAPID [Concomitant]
     Active Substance: INSULIN ASPART
     Indication: Hypothyroidism
  43. LEVEMIR [Concomitant]
     Active Substance: INSULIN DETEMIR
     Indication: Type 1 diabetes mellitus
     Route: 065
  44. LEVEMIR [Concomitant]
     Active Substance: INSULIN DETEMIR
     Indication: Hypertension
  45. LEVEMIR [Concomitant]
     Active Substance: INSULIN DETEMIR
     Indication: Dyslipidaemia
  46. LEVEMIR [Concomitant]
     Active Substance: INSULIN DETEMIR
     Indication: Hypothyroidism

REACTIONS (2)
  - Autoimmune myocarditis [Fatal]
  - Death [Fatal]

NARRATIVE: CASE EVENT DATE: 20241223
